FAERS Safety Report 8062694-1 (Version None)
Quarter: 2012Q1

REPORT INFORMATION
  Report Type: 
  Country: None (occurrence: None)
  Receive Date: 20120123
  Receipt Date: 20120118
  Transmission Date: 20120608
  Serious: Yes (Hospitalization)
  Sender: FDA-Public Use
  Company Number: US-ROXANE LABORATORIES, INC.-2012-RO-00497RO

PATIENT
  Age: 71 Year
  Sex: Male

DRUGS (3)
  1. CALCIUM CARBONATE [Suspect]
     Indication: MINERAL SUPPLEMENTATION
  2. WARFARIN SODIUM [Suspect]
     Indication: ATRIAL FIBRILLATION
  3. VITAMIN D [Suspect]
     Indication: VITAMIN SUPPLEMENTATION

REACTIONS (3)
  - MITRAL VALVE STENOSIS [None]
  - MITRAL VALVE CALCIFICATION [None]
  - INTRACARDIAC THROMBUS [None]
